FAERS Safety Report 5558635-9 (Version None)
Quarter: 2007Q4

REPORT INFORMATION
  Report Type: 
  Country: None (occurrence: None)
  Receive Date: 20071214
  Receipt Date: 20071211
  Transmission Date: 20080405
  Serious: Yes (Hospitalization)
  Sender: FDA-Public Use
  Company Number: US-BOEHRINGER INGELHEIM PHARMACEUTICALS, INC.-2007-BP-25985BP

PATIENT
  Age: 78 Year
  Sex: Male

DRUGS (1)
  1. SPIRIVA [Suspect]
     Indication: CHRONIC OBSTRUCTIVE PULMONARY DISEASE
     Route: 055
     Dates: start: 20050101, end: 20071101

REACTIONS (5)
  - CLOSTRIDIAL INFECTION [None]
  - DECUBITUS ULCER [None]
  - HAEMORRHAGE [None]
  - HYPOVENTILATION [None]
  - URINARY TRACT INFECTION [None]
